FAERS Safety Report 5277530-6 (Version None)
Quarter: 2007Q1

REPORT INFORMATION
  Report Type: 
  Country: None (occurrence: None)
  Receive Date: 20070327
  Receipt Date: 20070316
  Transmission Date: 20070707
  Serious: Yes (Death)
  Sender: FDA-Public Use
  Company Number: CA-ROCHE-488006

PATIENT
  Age: 48 Year
  Sex: Male

DRUGS (11)
  1. NAPROSYN [Suspect]
     Indication: DRUG USE FOR UNKNOWN INDICATION
     Route: 048
  2. VIREAD [Suspect]
     Indication: DRUG USE FOR UNKNOWN INDICATION
     Route: 048
  3. QUININE [Concomitant]
  4. PANTOPRAZOLE SODIUM [Concomitant]
  5. SPIRONOLACTONE [Concomitant]
  6. SEPTRA DS [Concomitant]
  7. KALETRA [Concomitant]
  8. VIDEX [Concomitant]
  9. FUROSEMIDE [Concomitant]
  10. KAYEXALATE [Concomitant]
  11. 1 CONCOMITANT DRUG [Concomitant]
     Dosage: REPORTED AS HYDRATION.

REACTIONS (6)
  - BLOOD CREATININE INCREASED [None]
  - BLOOD UREA INCREASED [None]
  - DEATH [None]
  - HYPERCALCAEMIA [None]
  - RENAL FAILURE ACUTE [None]
  - RENAL TUBULAR NECROSIS [None]
